FAERS Safety Report 23863777 (Version 1)
Quarter: 2024Q2

REPORT INFORMATION
  Report Type: Spontaneous
  Country: US (occurrence: None)
  Receive Date: 20240516
  Receipt Date: 20240516
  Transmission Date: 20240716
  Serious: Yes (Other)
  Sender: FDA-Public Use
  Company Number: None

PATIENT
  Sex: Female

DRUGS (8)
  1. ACTEMRA ACTPEN [Suspect]
     Active Substance: TOCILIZUMAB
     Indication: Rheumatoid arthritis
     Dosage: FREQUENCY : EVERY OTHER WEEK;?
     Route: 058
     Dates: start: 20240301
  2. AMLODIPINE [Concomitant]
     Active Substance: AMLODIPINE BESYLATE
  3. ARIPIPRAZOLE [Concomitant]
     Active Substance: ARIPIPRAZOLE
  4. BENZONATATE [Concomitant]
     Active Substance: BENZONATATE
  5. CELEBREX [Concomitant]
     Active Substance: CELECOXIB
  6. CELECOXIB [Concomitant]
     Active Substance: CELECOXIB
  7. CHLORTHALIDONE [Concomitant]
     Active Substance: CHLORTHALIDONE
  8. CLINDAMYCIN/BEN [Concomitant]

REACTIONS (4)
  - Surgery [None]
  - Pain [None]
  - Therapy interrupted [None]
  - Loss of personal independence in daily activities [None]
